FAERS Safety Report 9117969 (Version 2)
Quarter: 2013Q2

REPORT INFORMATION
  Report Type: Spontaneous
  Country: DE (occurrence: DE)
  Receive Date: 20130208
  Receipt Date: 20130503
  Transmission Date: 20140414
  Serious: Yes (Hospitalization)
  Sender: FDA-Public Use
  Company Number: DE-ELI_LILLY_AND_COMPANY-DE201211003901

PATIENT
  Age: 81 Year
  Sex: Female

DRUGS (5)
  1. FORSTEO [Suspect]
     Indication: OSTEOPOROSIS
     Dosage: UNK, QD
     Route: 058
     Dates: start: 20110720, end: 201211
  2. FORSTEO [Suspect]
     Dosage: UNK, QD
     Route: 058
  3. MORPHINE [Concomitant]
     Dosage: 4 MG, BID
     Dates: end: 201108
  4. HYDROMORPHONE [Concomitant]
     Dosage: 8 MG, UNK
     Dates: start: 201108
  5. VALORON N                          /00628301/ [Concomitant]
     Dosage: UNK
     Dates: end: 201108

REACTIONS (2)
  - Erysipelas [Not Recovered/Not Resolved]
  - Pigmentation disorder [Not Recovered/Not Resolved]
